FAERS Safety Report 9353692 (Version 1)
Quarter: 2013Q2

REPORT INFORMATION
  Report Type: Spontaneous
  Country: IT (occurrence: None)
  Receive Date: 20130612
  Receipt Date: 20130612
  Transmission Date: 20140414
  Serious: Yes (Death)
  Sender: FDA-Public Use
  Company Number: FK201301972

PATIENT
  Age: 67 Year
  Sex: Male

DRUGS (1)
  1. GEMCITABINE [Suspect]
     Indication: NON-SMALL CELL LUNG CANCER
     Route: 042
     Dates: start: 20130514, end: 20130514

REACTIONS (4)
  - Hepatorenal syndrome [None]
  - Hypotension [None]
  - Transaminases increased [None]
  - Hypercreatininaemia [None]
